FAERS Safety Report 4524188-7 (Version None)
Quarter: 2004Q4

REPORT INFORMATION
  Report Type: 
  Country: None (occurrence: None)
  Receive Date: 20041209
  Receipt Date: 20041201
  Transmission Date: 20050328
  Serious: Yes (Death)
  Sender: FDA-Public Use
  Company Number: A044-002-005337

PATIENT
  Age: 81 Year
  Sex: Female
  Weight: 56 kg

DRUGS (3)
  1. ARICEPT [Suspect]
     Indication: DEMENTIA
     Dosage: 10 + 20 MG,  1 IN 1 D, ORAL
     Route: 048
     Dates: start: 20020815
  2. ARICEPT [Suspect]
     Indication: DEPRESSION
     Dosage: 10 + 20 MG,  1 IN 1 D, ORAL
     Route: 048
     Dates: start: 20020815
  3. PAROXETINE HCL [Concomitant]

REACTIONS (1)
  - GASTROINTESTINAL HAEMORRHAGE [None]
